FAERS Safety Report 13637414 (Version 1)
Quarter: 2017Q2

REPORT INFORMATION
  Report Type: Spontaneous
  Country: US (occurrence: US)
  Receive Date: 20170609
  Receipt Date: 20170609
  Transmission Date: 20170830
  Serious: No
  Sender: FDA-Public Use
  Company Number: US-ASTELLAS-2017US016652

PATIENT
  Sex: Male

DRUGS (1)
  1. CRESEMBA [Suspect]
     Active Substance: ISAVUCONAZONIUM SULFATE
     Indication: BLASTOMYCOSIS
     Dosage: 372 MG (TWO 186 MG CAPS), ONCE DAILY
     Route: 048

REACTIONS (1)
  - Off label use [Not Recovered/Not Resolved]
